FAERS Safety Report 23667162 (Version 1)
Quarter: 2024Q1

REPORT INFORMATION
  Report Type: Spontaneous
  Country: FR (occurrence: FR)
  Receive Date: 20240325
  Receipt Date: 20240325
  Transmission Date: 20240410
  Serious: Yes (Congenital Anomaly)
  Sender: FDA-Public Use
  Company Number: None

PATIENT
  Age: 40 Day
  Sex: Female
  Weight: 3.7999 kg

DRUGS (1)
  1. HYDROXYUREA [Suspect]
     Active Substance: HYDROXYUREA
     Indication: Occupational exposure to product
     Route: 064
     Dates: start: 20230503

REACTIONS (2)
  - Cerebral ventricle dilatation [Recovered/Resolved]
  - Foetal exposure during pregnancy [Recovered/Resolved]

NARRATIVE: CASE EVENT DATE: 20230511
